FAERS Safety Report 7572133-2 (Version None)
Quarter: 2011Q2

REPORT INFORMATION
  Report Type: 
  Country: None (occurrence: None)
  Receive Date: 20110624
  Receipt Date: 20110613
  Transmission Date: 20111010
  Serious: Yes (Hospitalization)
  Sender: FDA-Public Use
  Company Number: CA-AMGEN-CANSP2011027860

PATIENT
  Age: 79 Year
  Sex: Female

DRUGS (16)
  1. METOPROLOL TARTRATE [Concomitant]
     Dosage: 25 MG, BID
  2. ATORVASTATIN [Concomitant]
     Dosage: 40 MG, QD
  3. PREDNISONE [Concomitant]
     Dosage: 5 MG, QD
  4. LANTUS [Concomitant]
     Dosage: 22 UNIT, UNK
  5. PAXIL [Concomitant]
     Dosage: 40 MG, QD
  6. ALLOPURINOL [Concomitant]
     Dosage: 100 MG, QD
  7. ASPIRIN [Concomitant]
     Dosage: 325 MG, QD
  8. EZETIMIBE [Concomitant]
     Dosage: 10 MG, QD
  9. HUMALOG [Concomitant]
     Dosage: 17 UNIT, QD
  10. RANITIDINE HCL [Concomitant]
     Dosage: 150 MG, QD
  11. TERAZOSIN HCL [Concomitant]
     Dosage: 5 MG, QD
  12. ENBREL [Suspect]
     Indication: RHEUMATOID ARTHRITIS
     Dosage: 50 MG, QWK
     Dates: start: 20090725
  13. ELAVIL [Concomitant]
     Dosage: 10 MG, QD
  14. VIT D [Concomitant]
     Dosage: 1000 UNIT, QD
  15. FUROSEMID                          /00032601/ [Concomitant]
     Dosage: 40 MG, QD
  16. TYLENOL W/ CODEINE NO. 2 [Concomitant]
     Dosage: UNK UNK, PRN

REACTIONS (2)
  - TONGUE NEOPLASM MALIGNANT STAGE UNSPECIFIED [None]
  - RHEUMATOID ARTHRITIS [None]
